FAERS Safety Report 12184169 (Version 5)
Quarter: 2016Q3

REPORT INFORMATION
  Report Type: Report from Study
  Country: CZ (occurrence: CZ)
  Receive Date: 20160316
  Receipt Date: 20160907
  Transmission Date: 20161109
  Serious: Yes (Death, Other)
  Sender: FDA-Public Use
  Company Number: CZ-TAKEDA-2016MPI001781

PATIENT
  Age: 68 Year
  Sex: Male
  Weight: 92 kg

DRUGS (14)
  1. DEGAN [Concomitant]
     Active Substance: METOCLOPRAMIDE HYDROCHLORIDE
     Indication: ANTIEMETIC SUPPORTIVE CARE
     Dosage: 10 MG, UNK
     Route: 048
     Dates: start: 20160215, end: 20160304
  2. VEROSPIRON [Concomitant]
     Active Substance: SPIRONOLACTONE
     Indication: IMPLANTABLE DEFIBRILLATOR INSERTION
     Dosage: 25 MG, BID
     Route: 048
     Dates: start: 2014, end: 201603
  3. DARATUMUMAB [Suspect]
     Active Substance: DARATUMUMAB
     Indication: PLASMA CELL MYELOMA
     Dosage: UNK
     Route: 042
  4. PREDNISONE. [Suspect]
     Active Substance: PREDNISONE
     Indication: PLASMA CELL MYELOMA
     Dosage: 125 MG, UNK
     Route: 048
     Dates: start: 20160222, end: 20160225
  5. VALTREX [Concomitant]
     Active Substance: VALACYCLOVIR HYDROCHLORIDE
     Indication: ANTIVIRAL PROPHYLAXIS
     Dosage: 500 MG, QD
     Route: 048
     Dates: start: 20160222, end: 20160304
  6. FURON                              /00032601/ [Concomitant]
     Active Substance: FUROSEMIDE
     Indication: GOUTY ARTHRITIS
     Dosage: 40 MG, UNK
     Route: 048
     Dates: start: 2014, end: 201603
  7. CONTROLOC                          /01263201/ [Concomitant]
     Indication: GASTRIC ULCER
     Dosage: 20 MG, QD
     Route: 048
     Dates: start: 2015, end: 201603
  8. MELPHALAN [Suspect]
     Active Substance: MELPHALAN
     Indication: PLASMA CELL MYELOMA
     Dosage: 19 MG, UNK
     Route: 048
     Dates: start: 20160222, end: 20160225
  9. ATORVASTATINUM [Concomitant]
     Indication: IMPLANTABLE DEFIBRILLATOR INSERTION
     Dosage: 10 MG, QD
     Route: 048
     Dates: start: 2011, end: 201603
  10. BETALOC                            /00376902/ [Concomitant]
     Active Substance: METOPROLOL TARTRATE
     Indication: HYPERTENSION
     Dosage: 100 MG, QD
     Route: 048
     Dates: start: 2011, end: 20160304
  11. AULIN [Concomitant]
     Active Substance: NIMESULIDE
     Indication: PAIN MANAGEMENT
     Dosage: 100 MG, UNK
     Route: 048
     Dates: start: 2015, end: 201603
  12. VELCADE [Suspect]
     Active Substance: BORTEZOMIB
     Indication: PLASMA CELL MYELOMA
     Dosage: 2.7 MG, UNK
     Route: 058
     Dates: start: 20160222, end: 20160303
  13. TRANSTEC [Concomitant]
     Active Substance: BUPRENORPHINE
     Indication: PAIN MANAGEMENT
     Dosage: 35 ?G, UNK
     Route: 050
     Dates: start: 20160215, end: 20160304
  14. ANOPYRIN [Concomitant]
     Active Substance: ASPIRIN
     Indication: THROMBOSIS PROPHYLAXIS
     Dosage: 100 MG, QD
     Route: 048
     Dates: start: 2011, end: 201603

REACTIONS (1)
  - Cardiac arrest [Fatal]

NARRATIVE: CASE EVENT DATE: 20160304
